FAERS Safety Report 8990677 (Version 1)
Quarter: 2012Q4

REPORT INFORMATION
  Report Type: 
  Country: GB (occurrence: GB)
  Receive Date: 20121228
  Receipt Date: 20121228
  Transmission Date: 20130627
  Serious: Yes (Other)
  Sender: FDA-Public Use
  Company Number: GB-JNJFOC-20121212925

PATIENT
  Age: 74 Year
  Sex: Male
  Weight: 99.77 kg

DRUGS (14)
  1. XARELTO [Suspect]
     Indication: CEREBROVASCULAR ACCIDENT PROPHYLAXIS
     Route: 048
     Dates: start: 201210, end: 20121125
  2. XARELTO [Suspect]
     Indication: ATRIAL FIBRILLATION
     Route: 048
     Dates: start: 201210, end: 20121125
  3. IBUPROFEN [Concomitant]
     Route: 065
  4. PARACETAMOL [Concomitant]
     Route: 065
  5. ATENOLOL [Concomitant]
     Indication: MYOCARDIAL ISCHAEMIA
     Route: 048
  6. ATENOLOL [Concomitant]
     Indication: LEFT VENTRICULAR DYSFUNCTION
     Route: 048
  7. RAMIPRIL [Concomitant]
     Indication: LEFT VENTRICULAR DYSFUNCTION
     Route: 048
  8. RAMIPRIL [Concomitant]
     Indication: MYOCARDIAL ISCHAEMIA
     Route: 048
  9. ISOSORBIDE MONONITRATE [Concomitant]
     Indication: MYOCARDIAL ISCHAEMIA
     Route: 065
  10. ISOSORBIDE MONONITRATE [Concomitant]
     Indication: LEFT VENTRICULAR DYSFUNCTION
     Route: 065
  11. NICORANDIL [Concomitant]
     Indication: MYOCARDIAL ISCHAEMIA
     Route: 048
  12. NICORANDIL [Concomitant]
     Indication: LEFT VENTRICULAR DYSFUNCTION
     Route: 048
  13. ATORVASTATIN [Concomitant]
     Indication: MYOCARDIAL ISCHAEMIA
     Route: 048
  14. ATORVASTATIN [Concomitant]
     Indication: LEFT VENTRICULAR DYSFUNCTION
     Route: 048

REACTIONS (2)
  - Haematoma [Recovering/Resolving]
  - Swelling [Unknown]
